FAERS Safety Report 10075958 (Version 1)
Quarter: 2014Q2

REPORT INFORMATION
  Report Type: Spontaneous
  Country: DK (occurrence: FR)
  Receive Date: 20140414
  Receipt Date: 20140414
  Transmission Date: 20141212
  Serious: Yes (Life-Threatening, Hospitalization)
  Sender: FDA-Public Use
  Company Number: FR-FRI-1000066377

PATIENT
  Age: 41 Year
  Sex: Female

DRUGS (3)
  1. ESCITALOPRAM [Suspect]
     Indication: DEPRESSION
     Dosage: UNKNOWN DOSE
     Route: 048
  2. ALPRAZOLAM [Suspect]
     Dosage: OVERDOSE (UNKNOWN DOSE)
     Route: 048
  3. ALCOHOL [Suspect]
     Dosage: OVERDOSE OF UNKNOWN DOSE

REACTIONS (4)
  - Altered state of consciousness [Recovered/Resolved]
  - Acute respiratory failure [Recovered/Resolved]
  - Pneumonia aspiration [Recovered/Resolved]
  - Overdose [Recovered/Resolved]
